FAERS Safety Report 5893611-8 (Version None)
Quarter: 2008Q3

REPORT INFORMATION
  Report Type: 
  Country: None (occurrence: None)
  Receive Date: 20080923
  Receipt Date: 20070918
  Transmission Date: 20090109
  Serious: No
  Sender: FDA-Public Use
  Company Number: US-ASTRAZENECA-2007UW21975

PATIENT
  Age: 88 Year
  Sex: Female
  Weight: 74.4 kg

DRUGS (3)
  1. SEROQUEL [Suspect]
     Indication: DEMENTIA
     Dosage: 6MG IN AM, 6MG IN AFTERNOON, 25 MG IN PM
     Route: 048
     Dates: start: 20060101
  2. CELEBREX [Concomitant]
     Route: 048
  3. EXTRA STRENGTH TYLENOL [Concomitant]
     Route: 048

REACTIONS (12)
  - ABDOMINAL DISTENSION [None]
  - DIZZINESS [None]
  - DYSARTHRIA [None]
  - EYE DISORDER [None]
  - GAIT DISTURBANCE [None]
  - INCREASED APPETITE [None]
  - JAW DISORDER [None]
  - POLLAKIURIA [None]
  - SLEEP TALKING [None]
  - SOMNOLENCE [None]
  - TREMOR [None]
  - WEIGHT INCREASED [None]
